FAERS Safety Report 13743723 (Version 1)
Quarter: 2017Q3

REPORT INFORMATION
  Report Type: Report from Study
  Country: US (occurrence: US)
  Receive Date: 20170711
  Receipt Date: 20170711
  Transmission Date: 20171127
  Serious: Yes (Hospitalization, Other)
  Sender: FDA-Public Use
  Company Number: US-AMGEN-USASL2017101927

PATIENT
  Sex: Female

DRUGS (1)
  1. REPATHA [Suspect]
     Active Substance: EVOLOCUMAB
     Indication: HYPERCHOLESTEROLAEMIA
     Dosage: 140 MG, Q2WK
     Route: 065

REACTIONS (10)
  - Gastrointestinal infection [Unknown]
  - Fall [Unknown]
  - Dizziness [Unknown]
  - Ear infection [Unknown]
  - Malaise [Unknown]
  - Tympanic membrane disorder [Unknown]
  - Volvulus [Unknown]
  - Cardiac aneurysm [Unknown]
  - Loss of consciousness [Unknown]
  - Vomiting [Unknown]
